FAERS Safety Report 8295615-7 (Version None)
Quarter: 2012Q2

REPORT INFORMATION
  Report Type: 
  Country: None (occurrence: None)
  Receive Date: 20120413
  Receipt Date: 20120413
  Transmission Date: 20120825
  Serious: No
  Sender: FDA-Public Use
  Company Number: None

PATIENT
  Age: 58 Year
  Sex: Female

DRUGS (2)
  1. PLAQUENIL [Suspect]
     Dates: end: 20100310
  2. LOVASTATIN [Suspect]
     Dates: end: 20100301

REACTIONS (1)
  - HEPATIC CIRRHOSIS [None]
